FAERS Safety Report 4688656-X (Version None)
Quarter: 2005Q2

REPORT INFORMATION
  Report Type: 
  Country: None (occurrence: None)
  Receive Date: 20050613
  Receipt Date: 20050603
  Transmission Date: 20051028
  Serious: Yes (Other)
  Sender: FDA-Public Use
  Company Number: US-JNJFOC-20050601994

PATIENT
  Age: 3 Year
  Sex: Female

DRUGS (2)
  1. CHILDREN'S TYLENOL [Suspect]
     Route: 049
  2. CHILDREN'S TYLENOL [Suspect]
     Route: 049

REACTIONS (2)
  - RASH GENERALISED [None]
  - URTICARIA [None]
